FAERS Safety Report 23598113 (Version 4)
Quarter: 2024Q2

REPORT INFORMATION
  Report Type: Spontaneous
  Country: US (occurrence: US)
  Receive Date: 20240305
  Receipt Date: 20240504
  Transmission Date: 20240716
  Serious: No
  Sender: FDA-Public Use
  Company Number: US-002147023-NVSC2024US046244

PATIENT

DRUGS (1)
  1. VALSARTAN [Suspect]
     Active Substance: VALSARTAN
     Indication: Blood pressure measurement
     Dosage: UNK
     Route: 065

REACTIONS (2)
  - Back pain [Unknown]
  - Asthenia [Unknown]
